FAERS Safety Report 8460803 (Version 4)
Quarter: 2014Q1

REPORT INFORMATION
  Report Type: Report from Study
  Country: DE (occurrence: DE)
  Receive Date: 20120315
  Receipt Date: 20140117
  Transmission Date: 20141002
  Serious: Yes (Other)
  Sender: FDA-Public Use
  Company Number: DE-JNJFOC-20120304139

PATIENT
  Age: 45 Year
  Sex: Male
  Weight: 102 kg

DRUGS (3)
  1. STELARA [Suspect]
     Indication: PSORIASIS
     Dates: end: 20111014
  2. STELARA [Suspect]
     Indication: PSORIASIS
  3. STELARA [Suspect]
     Indication: PSORIASIS
     Dates: start: 20100118, end: 20110727

REACTIONS (2)
  - Adrenal adenoma [Not Recovered/Not Resolved]
  - Hepatic steatosis [Unknown]
